FAERS Safety Report 9735844 (Version 1)
Quarter: 2013Q4

REPORT INFORMATION
  Report Type: Spontaneous
  Country: US (occurrence: US)
  Receive Date: 20131206
  Receipt Date: 20131206
  Transmission Date: 20140711
  Serious: No
  Sender: FDA-Public Use
  Company Number: US-GILEAD-2009-0024046

PATIENT
  Sex: Female
  Weight: 52.62 kg

DRUGS (14)
  1. LETAIRIS [Suspect]
     Indication: PULMONARY ARTERIAL HYPERTENSION
     Route: 048
     Dates: start: 20080514
  2. AMBIEN [Concomitant]
  3. SYNTHROID [Concomitant]
  4. LOTREL [Concomitant]
  5. LABETALOL [Concomitant]
  6. KEPPRA [Concomitant]
  7. PLAVIX [Concomitant]
  8. RENAGEL [Concomitant]
  9. SENSIPAR [Concomitant]
  10. CLONIDINE [Concomitant]
  11. PREVACID [Concomitant]
  12. ASPIRIN [Concomitant]
  13. ZYRTEC [Concomitant]
  14. FOLIC ACID [Concomitant]

REACTIONS (1)
  - Oedema peripheral [Unknown]
